FAERS Safety Report 17064228 (Version 2)
Quarter: 2019Q4

REPORT INFORMATION
  Report Type: Report from Study
  Country: US (occurrence: US)
  Receive Date: 20191122
  Receipt Date: 20191205
  Transmission Date: 20200122
  Serious: Yes (Hospitalization)
  Sender: FDA-Public Use
  Company Number: US-EISAI MEDICAL RESEARCH-EC-2019-063523

PATIENT
  Age: 58 Year
  Sex: Male
  Weight: 116 kg

DRUGS (15)
  1. TAMSULOSIN HCL [Concomitant]
     Active Substance: TAMSULOSIN HYDROCHLORIDE
  2. ATENOLOL. [Concomitant]
     Active Substance: ATENOLOL
  3. DEXAMETHASONE. [Concomitant]
     Active Substance: DEXAMETHASONE
  4. NEURONTIN [Concomitant]
     Active Substance: GABAPENTIN
  5. TRAZODONE HYDROCHLORIDE. [Concomitant]
     Active Substance: TRAZODONE HYDROCHLORIDE
  6. LENVIMA [Suspect]
     Active Substance: LENVATINIB
     Indication: RENAL CANCER
     Route: 048
     Dates: start: 20191002, end: 20191103
  7. ESCITALOPRAM OXALATE. [Concomitant]
     Active Substance: ESCITALOPRAM OXALATE
  8. ALLOPURINOL. [Concomitant]
     Active Substance: ALLOPURINOL
  9. LENVIMA [Suspect]
     Active Substance: LENVATINIB
     Route: 048
     Dates: start: 201911
  10. AFINITOR [Concomitant]
     Active Substance: EVEROLIMUS
  11. ELIQUIS [Concomitant]
     Active Substance: APIXABAN
  12. AMLODIPINE BESYLATE. [Concomitant]
     Active Substance: AMLODIPINE BESYLATE
  13. LOSARTAN POTASSIUM. [Concomitant]
     Active Substance: LOSARTAN POTASSIUM
  14. ALPRAZOLAM. [Concomitant]
     Active Substance: ALPRAZOLAM
  15. PRAVASTATIN SODIUM. [Concomitant]
     Active Substance: PRAVASTATIN SODIUM

REACTIONS (14)
  - Aspartate aminotransferase increased [Recovering/Resolving]
  - Pain [Not Recovered/Not Resolved]
  - Rib fracture [Recovering/Resolving]
  - Insomnia [Unknown]
  - Nausea [Recovering/Resolving]
  - Chest pain [Unknown]
  - Hypertension [Not Recovered/Not Resolved]
  - Metastases to bone [Unknown]
  - Weight decreased [Not Recovered/Not Resolved]
  - Oral pain [Recovered/Resolved]
  - Neoplasm progression [Not Recovered/Not Resolved]
  - Headache [Unknown]
  - Decreased appetite [Recovering/Resolving]
  - Rash pruritic [Unknown]

NARRATIVE: CASE EVENT DATE: 201910
